FAERS Safety Report 5961007-6 (Version None)
Quarter: 2008Q4

REPORT INFORMATION
  Report Type: 
  Country: None (occurrence: None)
  Receive Date: 20081121
  Receipt Date: 20080114
  Transmission Date: 20090506
  Serious: No
  Sender: FDA-Public Use
  Company Number: A0700998A

PATIENT
  Age: 81 Year
  Sex: Male

DRUGS (5)
  1. LANOXIN [Suspect]
     Indication: ATRIAL FIBRILLATION
     Route: 048
  2. ZESTRIL [Concomitant]
  3. COUMADIN [Concomitant]
  4. COREG [Concomitant]
     Dosage: 25MG TWICE PER DAY
  5. LIPITOR [Concomitant]
     Dosage: 10MG PER DAY

REACTIONS (1)
  - CARDIOACTIVE DRUG LEVEL DECREASED [None]
